FAERS Safety Report 6866646-6 (Version None)
Quarter: 2010Q3

REPORT INFORMATION
  Report Type: 
  Country: None (occurrence: None)
  Receive Date: 20100722
  Receipt Date: 20100715
  Transmission Date: 20110219
  Serious: Yes (Other)
  Sender: FDA-Public Use
  Company Number: US-SANOFI-AVENTIS-2010SA041895

PATIENT
  Age: 78 Year
  Sex: Female
  Weight: 83.9 kg

DRUGS (13)
  1. PLAVIX [Suspect]
     Route: 048
     Dates: start: 20070101
  2. ASPIRIN [Concomitant]
  3. AMLODIPINE [Concomitant]
  4. FLUOXETINE [Concomitant]
  5. ATORVASTATIN [Concomitant]
  6. METOPROLOL [Concomitant]
  7. NAMENDA [Concomitant]
  8. SENNA-GEN [Concomitant]
  9. VITAMIN E [Concomitant]
  10. FENTANYL [Concomitant]
     Route: 062
  11. ARICEPT [Concomitant]
  12. MULTI-VITAMINS [Concomitant]
  13. HYDROCODONE BITARTRATE [Concomitant]

REACTIONS (3)
  - COLON CANCER METASTATIC [None]
  - DRUG DOSE OMISSION [None]
  - LABORATORY TEST ABNORMAL [None]
